FAERS Safety Report 6193330-7 (Version None)
Quarter: 2009Q2

REPORT INFORMATION
  Report Type: 
  Country: None (occurrence: None)
  Receive Date: 20090518
  Receipt Date: 20090507
  Transmission Date: 20091009
  Serious: Yes (Death)
  Sender: FDA-Public Use
  Company Number: CA-BAXTER-2009BH004779

PATIENT
  Age: 49 Year
  Sex: Female

DRUGS (1)
  1. BUMINATE 25% [Suspect]
     Indication: CORONARY ARTERY DISEASE
     Route: 065
     Dates: start: 20090222, end: 20090222

REACTIONS (2)
  - CARDIAC FAILURE [None]
  - CONDITION AGGRAVATED [None]
